FAERS Safety Report 4946712-2 (Version None)
Quarter: 2006Q1

REPORT INFORMATION
  Report Type: 
  Country: None (occurrence: None)
  Receive Date: 20060317
  Receipt Date: 20051003
  Transmission Date: 20060701
  Serious: Yes (Death, Hospitalization)
  Sender: FDA-Public Use
  Company Number: US-MERCK-0510USA02465

PATIENT
  Age: 78 Year
  Sex: Male
  Weight: 64 kg

DRUGS (4)
  1. VIOXX [Suspect]
     Indication: PAIN
     Route: 048
     Dates: start: 20000301, end: 20010901
  2. VIOXX [Suspect]
     Route: 048
     Dates: start: 20020128, end: 20020901
  3. VIOXX [Suspect]
     Indication: MYALGIA
     Route: 048
     Dates: start: 20000301, end: 20010901
  4. VIOXX [Suspect]
     Route: 048
     Dates: start: 20020128, end: 20020901

REACTIONS (8)
  - ARRHYTHMIA [None]
  - ARTERIOSCLEROSIS [None]
  - CEREBROVASCULAR ACCIDENT [None]
  - CLAVICLE FRACTURE [None]
  - CORONARY ARTERY DISEASE [None]
  - DEPRESSION [None]
  - FALL [None]
  - MYOCARDIAL INFARCTION [None]
